FAERS Safety Report 11417388 (Version 1)
Quarter: 2015Q3

REPORT INFORMATION
  Report Type: Spontaneous
  Country: US (occurrence: US)
  Receive Date: 20150825
  Receipt Date: 20150825
  Transmission Date: 20151125
  Serious: Yes (Other)
  Sender: FDA-Public Use
  Company Number: US-MYLANLABS-2015M1027908

PATIENT

DRUGS (1)
  1. SOTRADECOL [Suspect]
     Active Substance: SODIUM TETRADECYL SULFATE
     Indication: VEIN DISORDER
     Dosage: 3 ML
     Route: 042
     Dates: start: 20150114, end: 20150114

REACTIONS (5)
  - Eye swelling [Unknown]
  - Blindness [Not Recovered/Not Resolved]
  - Seizure [Unknown]
  - Retinal artery embolism [Unknown]
  - Swelling face [Unknown]

NARRATIVE: CASE EVENT DATE: 201501
